FAERS Safety Report 9308696 (Version 1)
Quarter: 2013Q2

REPORT INFORMATION
  Report Type: Spontaneous
  Country: JP (occurrence: JP)
  Receive Date: 20130524
  Receipt Date: 20130524
  Transmission Date: 20140414
  Serious: Yes (Life-Threatening, Hospitalization)
  Sender: FDA-Public Use
  Company Number: PHHY2011JP106866

PATIENT
  Age: 67 Year
  Sex: Female
  Weight: 37.9 kg

DRUGS (3)
  1. ESANBUTOL [Suspect]
     Indication: ATYPICAL MYCOBACTERIAL INFECTION
     Dosage: 500 MG/DAY
     Route: 048
     Dates: start: 20110526, end: 20110607
  2. RIFAMPICIN [Suspect]
     Indication: ATYPICAL MYCOBACTERIAL INFECTION
     Dosage: 300 MG/DAY
     Route: 048
     Dates: start: 20110526, end: 20110607
  3. LEVOFLOXACIN [Concomitant]
     Indication: ATYPICAL MYCOBACTERIAL INFECTION
     Dosage: 500 MG/DAY FOR 2 WEEKS

REACTIONS (8)
  - Anti-neutrophil cytoplasmic antibody positive vasculitis [Recovering/Resolving]
  - Pyrexia [Recovering/Resolving]
  - Renal failure acute [Recovering/Resolving]
  - Nephropathy [Recovering/Resolving]
  - Renal impairment [Recovering/Resolving]
  - Kidney enlargement [Recovering/Resolving]
  - Renal tubular disorder [Recovering/Resolving]
  - Malaise [Recovering/Resolving]
